FAERS Safety Report 8001857-8 (Version None)
Quarter: 2011Q4

REPORT INFORMATION
  Report Type: 
  Country: None (occurrence: None)
  Receive Date: 20111220
  Receipt Date: 20111201
  Transmission Date: 20120403
  Serious: Yes (Hospitalization, Other)
  Sender: FDA-Public Use
  Company Number: CIP11000529

PATIENT
  Age: 71 Year
  Sex: Female

DRUGS (13)
  1. NEXIUM [Concomitant]
  2. DIPHENOXYLATE W/ATROPINE SULFATE (ATROPINE SULFATE, DIPHENOXYLATE) [Concomitant]
  3. KERALAC (UREA) [Concomitant]
  4. ACIPHEX [Concomitant]
  5. CIPROFLOXACIN [Concomitant]
  6. LIPITOR [Concomitant]
  7. VYTORIN [Concomitant]
  8. AMBIEN [Concomitant]
  9. BIAXIN [Concomitant]
  10. BONIVA [Suspect]
     Dosage: 150 MG ONCE  MONTHLY
     Dates: start: 20061015, end: 20100301
  11. ACTONEL [Suspect]
     Dosage: 35 MG, REGIMEN UNKNOWN, ORAL
     Route: 048
     Dates: start: 20020101, end: 20061015
  12. HYDROCORTONE [Concomitant]
  13. PROCTOFOAM [Concomitant]

REACTIONS (16)
  - JOINT SWELLING [None]
  - FRACTURE DISPLACEMENT [None]
  - ANAEMIA POSTOPERATIVE [None]
  - HYPOKALAEMIA [None]
  - FEMUR FRACTURE [None]
  - GAIT DISTURBANCE [None]
  - ARTHRALGIA [None]
  - MUSCULOSKELETAL DISORDER [None]
  - PROCEDURAL PAIN [None]
  - PATHOLOGICAL FRACTURE [None]
  - FRACTURE DELAYED UNION [None]
  - STRESS FRACTURE [None]
  - PAIN IN EXTREMITY [None]
  - ARTHRITIS [None]
  - HAEMORRHAGE [None]
  - DISCOMFORT [None]
